FAERS Safety Report 21224239 (Version 1)
Quarter: 2022Q3

REPORT INFORMATION
  Report Type: Spontaneous
  Country: US (occurrence: None)
  Receive Date: 20220817
  Receipt Date: 20220817
  Transmission Date: 20221026
  Serious: Yes (Other)
  Sender: FDA-Public Use
  Company Number: US-ROCHE-2765793

PATIENT
  Sex: Female

DRUGS (3)
  1. OCREVUS [Suspect]
     Active Substance: OCRELIZUMAB
     Indication: Relapsing multiple sclerosis
     Dosage: DATES OF TREATMENT: 24/SEP/2018, 21/MAR/2019, 07/AUG/2020?DATE OF LAST INFUSION: 14/JUN/2021?(PRESCR
     Route: 042
     Dates: start: 20180912
  2. OCREVUS [Suspect]
     Active Substance: OCRELIZUMAB
     Indication: Relapsing-remitting multiple sclerosis
  3. OCREVUS [Suspect]
     Active Substance: OCRELIZUMAB
     Indication: Multiple sclerosis

REACTIONS (2)
  - Maternal exposure during pregnancy [Unknown]
  - Psoriasis [Unknown]
